FAERS Safety Report 6851926-0 (Version None)
Quarter: 2010Q3

REPORT INFORMATION
  Report Type: 
  Country: None (occurrence: None)
  Receive Date: 20100717
  Receipt Date: 20080922
  Transmission Date: 20110219
  Serious: Yes (Hospitalization, Other)
  Sender: FDA-Public Use
  Company Number: US-PFIZER INC-2008006843

PATIENT
  Sex: Female
  Weight: 90.7 kg

DRUGS (15)
  1. CHANTIX [Suspect]
     Indication: SMOKING CESSATION THERAPY
     Dates: start: 20071128, end: 20080314
  2. METFORMIN HCL [Concomitant]
  3. ACETYLSALICYLIC ACID [Concomitant]
  4. ALBUTEROL [Concomitant]
  5. LISINOPRIL [Concomitant]
  6. SYNTHROID [Concomitant]
  7. PREMPRO [Concomitant]
  8. LIPITOR [Concomitant]
  9. CALCIUM [Concomitant]
  10. DEPAKOTE [Concomitant]
  11. CYMBALTA [Concomitant]
  12. GEODON [Concomitant]
  13. LEVOTHYROXINE SODIUM [Concomitant]
  14. RISPERDAL [Concomitant]
  15. DOXEPIN HCL [Concomitant]

REACTIONS (10)
  - ABDOMINAL PAIN UPPER [None]
  - ASTHENIA [None]
  - DIZZINESS [None]
  - FEELING ABNORMAL [None]
  - MALAISE [None]
  - NAUSEA [None]
  - RESPIRATORY DISORDER [None]
  - SOMNOLENCE [None]
  - SUICIDAL IDEATION [None]
  - TREMOR [None]
